FAERS Safety Report 21513031 (Version 1)
Quarter: 2022Q4

REPORT INFORMATION
  Report Type: Spontaneous
  Country: US (occurrence: None)
  Receive Date: 20221026
  Receipt Date: 20221026
  Transmission Date: 20230112
  Serious: No
  Sender: FDA-Public Use
  Company Number: None

PATIENT
  Sex: Female

DRUGS (1)
  1. HUMIRA [Suspect]
     Active Substance: ADALIMUMAB
     Indication: Retinal vasculitis
     Dosage: FREQUENCY : EVERY OTHER WEEK;?OTHER ROUTE : UNDER THE SKIN;?
     Route: 050
     Dates: start: 202205

REACTIONS (1)
  - Drug ineffective [None]
